FAERS Safety Report 18597695 (Version 5)
Quarter: 2021Q3

REPORT INFORMATION
  Report Type: Spontaneous
  Country: US (occurrence: US)
  Receive Date: 20201209
  Receipt Date: 20210824
  Transmission Date: 20211014
  Serious: Yes (Other)
  Sender: FDA-Public Use
  Company Number: US-PFIZER INC-2020469446

PATIENT
  Age: 49 Year
  Sex: Female

DRUGS (5)
  1. XELJANZ XR [Suspect]
     Active Substance: TOFACITINIB CITRATE
     Dosage: 11 MG
     Dates: start: 20201014, end: 202010
  2. ACTEMRA [Suspect]
     Active Substance: TOCILIZUMAB
     Dosage: UNK
  3. XELJANZ XR [Suspect]
     Active Substance: TOFACITINIB CITRATE
     Dosage: 11 MG
     Dates: start: 20201001, end: 202012
  4. XELJANZ XR [Suspect]
     Active Substance: TOFACITINIB CITRATE
     Dosage: 11 MG
     Dates: start: 20201017, end: 2020
  5. XELJANZ XR [Suspect]
     Active Substance: TOFACITINIB CITRATE
     Indication: PSORIASIS
     Dosage: 11 MG
     Dates: start: 20200930, end: 2020

REACTIONS (13)
  - Frustration tolerance decreased [Unknown]
  - Fatigue [Unknown]
  - Peripheral swelling [Unknown]
  - Off label use [Unknown]
  - Glossodynia [Unknown]
  - Nausea [Unknown]
  - Insomnia [Unknown]
  - Peripheral coldness [Unknown]
  - Drug ineffective for unapproved indication [Unknown]
  - Asthenia [Unknown]
  - Joint injury [Unknown]
  - Stomatitis [Unknown]
  - Dizziness [Unknown]

NARRATIVE: CASE EVENT DATE: 2020
